FAERS Safety Report 8177796-9 (Version None)
Quarter: 2012Q1

REPORT INFORMATION
  Report Type: 
  Country: None (occurrence: None)
  Receive Date: 20120301
  Receipt Date: 20120208
  Transmission Date: 20120608
  Serious: Yes (Hospitalization)
  Sender: FDA-Public Use
  Company Number: US-ROCHE-1043561

PATIENT
  Sex: Female
  Weight: 135.8 kg

DRUGS (7)
  1. LIPITOR [Concomitant]
  2. BACTRIM DS [Concomitant]
  3. LANTUS [Concomitant]
     Route: 058
  4. NORCO [Concomitant]
     Dosage: 5/325 MG
  5. RANIBIZUMAB [Suspect]
     Indication: DIABETIC RETINAL OEDEMA
     Route: 050
     Dates: start: 20110330
  6. ACTOS [Concomitant]
     Route: 048
  7. COLACE [Concomitant]

REACTIONS (1)
  - URINARY TRACT INFECTION [None]
